FAERS Safety Report 4953955-0 (Version None)
Quarter: 2006Q1

REPORT INFORMATION
  Report Type: 
  Country: None (occurrence: None)
  Receive Date: 20060327
  Receipt Date: 20060315
  Transmission Date: 20060701
  Serious: Yes (Other)
  Sender: FDA-Public Use
  Company Number: JP-JNJFOC-20060203924

PATIENT
  Sex: Male

DRUGS (5)
  1. DUROTEP [Suspect]
     Route: 062
  2. DUROTEP [Suspect]
     Route: 062
  3. DUROTEP [Suspect]
     Route: 062
  4. MORPHINE [Concomitant]
     Route: 048
  5. HALOPERIDOL [Concomitant]
     Route: 065

REACTIONS (5)
  - ANOREXIA [None]
  - MALIGNANT URINARY TRACT NEOPLASM [None]
  - NAUSEA [None]
  - RESTLESSNESS [None]
  - VOMITING [None]
